FAERS Safety Report 8862949 (Version 1)
Quarter: 2012Q4

REPORT INFORMATION
  Report Type: 
  Country: DE (occurrence: DE)
  Receive Date: 20121026
  Receipt Date: 20121026
  Transmission Date: 20130627
  Serious: Yes (Life-Threatening, Hospitalization, Other)
  Sender: FDA-Public Use
  Company Number: DE-ABBOTT-12P-062-0998988-00

PATIENT
  Age: 47 Year
  Sex: Female
  Weight: 46 kg

DRUGS (5)
  1. HUMIRA [Suspect]
     Indication: CROHN^S DISEASE
     Dosage: first dose 80 mg, then 40 mg
     Route: 058
     Dates: start: 20120925
  2. HUMIRA [Suspect]
     Dosage: first dose 80 mg, then 40 mg
     Route: 058
     Dates: start: 20080211, end: 201004
  3. AMLODIPIN [Concomitant]
     Route: 048
     Dates: end: 2010
  4. BISOPROLOL [Concomitant]
     Indication: PRODUCT USED FOR UNKNOWN INDICATION
     Dates: end: 2010
  5. PREDNISOLON [Concomitant]
     Indication: PRODUCT USED FOR UNKNOWN INDICATION
     Dosage: 5 to 20 mg per day
     Route: 048

REACTIONS (3)
  - Portal vein thrombosis [Not Recovered/Not Resolved]
  - Mesenteric occlusion [Not Recovered/Not Resolved]
  - Hepatic failure [Not Recovered/Not Resolved]
